FAERS Safety Report 12071382 (Version 2)
Quarter: 2017Q4

REPORT INFORMATION
  Report Type: Spontaneous
  Country: CH (occurrence: CH)
  Receive Date: 20160211
  Receipt Date: 20171215
  Transmission Date: 20180320
  Serious: Yes (Other)
  Sender: FDA-Public Use
  Company Number: CH-ABBVIE-16P-151-1538740-00

PATIENT
  Age: 1 Year
  Sex: Male
  Weight: 11.5 kg

DRUGS (2)
  1. SEVORANE [Suspect]
     Active Substance: SEVOFLURANE
     Dosage: 09:35 TO 10:10
     Route: 065
     Dates: start: 20120814, end: 20120814
  2. SEVORANE [Suspect]
     Active Substance: SEVOFLURANE
     Indication: PRODUCT USED FOR UNKNOWN INDICATION
     Dosage: 13:35 TO 14:31
     Route: 065
     Dates: start: 20120812, end: 20120812

REACTIONS (21)
  - Vomiting [Unknown]
  - Tachycardia [Unknown]
  - Hypersensitivity [Unknown]
  - Somnolence [Recovered/Resolved]
  - Agitation [Not Recovered/Not Resolved]
  - Coagulopathy [Recovered/Resolved]
  - Decreased appetite [Unknown]
  - Poor quality sleep [Unknown]
  - Rash [Unknown]
  - Vomiting [Unknown]
  - Encephalopathy [Unknown]
  - Pyrexia [Recovered/Resolved]
  - Chills [Recovered/Resolved]
  - Transaminases increased [Recovered/Resolved]
  - Swelling [Unknown]
  - Salivary hypersecretion [Unknown]
  - Dyspnoea [Unknown]
  - Hepatitis fulminant [Recovered/Resolved]
  - Laryngospasm [Recovered/Resolved]
  - Ocular hyperaemia [Unknown]
  - Nervousness [Unknown]

NARRATIVE: CASE EVENT DATE: 20120812
